FAERS Safety Report 9036736 (Version 1)
Quarter: 2013Q1

REPORT INFORMATION
  Report Type: Spontaneous
  Country: US (occurrence: None)
  Receive Date: 20130123
  Receipt Date: 20130123
  Transmission Date: 20140127
  Serious: Yes (Life-Threatening, Hospitalization, Other)
  Sender: FDA-Public Use
  Company Number: None

PATIENT
  Age: 58 Year
  Sex: Female
  Weight: 68.04 kg

DRUGS (12)
  1. AFINITOR [Suspect]
     Indication: BREAST CANCER METASTATIC
     Route: 048
     Dates: start: 20121001, end: 20121008
  2. CYMBALTA [Concomitant]
  3. WELLBUTRIN [Concomitant]
  4. CELEBREX [Concomitant]
  5. EXEMESTANE [Concomitant]
  6. DEPLIN [Concomitant]
  7. CEREFOLIN [Concomitant]
  8. NEFAZADONE [Concomitant]
  9. LEVOTHYROXINE [Concomitant]
  10. DEVIL [Concomitant]
  11. ALPRAZOLAM [Concomitant]
  12. ZOLPIDEM [Concomitant]

REACTIONS (21)
  - Stomatitis [None]
  - Syncope [None]
  - Blood pressure diastolic decreased [None]
  - Dehydration [None]
  - Drug effect decreased [None]
  - Feeling abnormal [None]
  - Fungal cystitis [None]
  - Abdominal pain upper [None]
  - Back pain [None]
  - Nausea [None]
  - Vomiting [None]
  - Diarrhoea [None]
  - Asthenia [None]
  - Dizziness [None]
  - Weight decreased [None]
  - Decreased appetite [None]
  - Visual impairment [None]
  - Hyperacusis [None]
  - Migraine [None]
  - Confusional state [None]
  - Electrolyte imbalance [None]
